FAERS Safety Report 9503074 (Version 3)
Quarter: 2013Q3

REPORT INFORMATION
  Report Type: Report from Study
  Country: FR (occurrence: FR)
  Receive Date: 20130906
  Receipt Date: 20130916
  Transmission Date: 20140515
  Serious: Yes (Death, Other)
  Sender: FDA-Public Use
  Company Number: FR-PFIZER INC-2012204290

PATIENT
  Age: 73 Year
  Sex: Female

DRUGS (5)
  1. CRIZOTINIB [Suspect]
     Indication: NEOPLASM MALIGNANT
     Dosage: 250 MG, 2X/DAY
     Dates: start: 20120711, end: 20120727
  2. CRIZOTINIB [Suspect]
     Dosage: 250 MG, 2X/DAY
     Dates: start: 20120803, end: 20120817
  3. CRIZOTINIB [Suspect]
     Dosage: UNK
     Dates: end: 20130117
  4. CRIZOTINIB [Suspect]
     Dosage: UNK
     Dates: end: 20130222
  5. MOVICOL [Concomitant]
     Dosage: 1 SACHET, 3X/DAY
     Route: 048

REACTIONS (6)
  - Disease progression [Fatal]
  - Neoplasm malignant [Fatal]
  - Transaminases increased [Not Recovered/Not Resolved]
  - Haemoglobin decreased [Unknown]
  - Nausea [Unknown]
  - Constipation [Unknown]
